FAERS Safety Report 4289432-2 (Version None)
Quarter: 2004Q1

REPORT INFORMATION
  Report Type: 
  Country: None (occurrence: None)
  Receive Date: 20040126
  Receipt Date: 20030923
  Transmission Date: 20041129
  Serious: No
  Sender: FDA-Public Use
  Company Number: USA030331086

PATIENT
  Age: 74 Year
  Sex: Female
  Weight: 63 kg

DRUGS (6)
  1. FORTEO [Suspect]
     Indication: OSTEOPOROSIS
     Dosage: 20 UG/DAY
     Dates: start: 20030214, end: 20030919
  2. ACIPHEX [Concomitant]
  3. ELDEPRYL [Concomitant]
  4. SINEMET CR [Concomitant]
  5. VIOXX [Concomitant]
  6. SYNTHROID [Concomitant]

REACTIONS (6)
  - DIZZINESS [None]
  - MOVEMENT DISORDER [None]
  - MUSCLE CRAMP [None]
  - PALPITATIONS [None]
  - SOMNOLENCE [None]
  - WALKING AID USER [None]
